FAERS Safety Report 8473785-5 (Version None)
Quarter: 2012Q2

REPORT INFORMATION
  Report Type: 
  Country: None (occurrence: None)
  Receive Date: 20120628
  Receipt Date: 20120112
  Transmission Date: 20120825
  Serious: Yes (Other)
  Sender: FDA-Public Use
  Company Number: US-MYLANLABS-2011S1023288

PATIENT
  Age: 25 Year
  Sex: Male
  Weight: 87.54 kg

DRUGS (3)
  1. RIBAVIRIN [Suspect]
     Indication: HEPATITIS
     Dates: start: 20111014, end: 20111208
  2. CLOZAPINE [Suspect]
     Indication: SCHIZOPHRENIA
     Route: 048
     Dates: end: 20111208
  3. PEGASYS [Suspect]
     Route: 058
     Dates: start: 20111014, end: 20111208

REACTIONS (3)
  - GRANULOCYTOPENIA [None]
  - LEUKOPENIA [None]
  - HEPATITIS [None]
